FAERS Safety Report 8817871 (Version 1)
Quarter: 2012Q4

REPORT INFORMATION
  Report Type: 
  Country: US (occurrence: US)
  Receive Date: 20121004
  Receipt Date: 20121004
  Transmission Date: 20130627
  Serious: Yes (Death, Hospitalization)
  Sender: FDA-Public Use
  Company Number: US-ROCHE-636453

PATIENT
  Age: 66 Year
  Sex: Female

DRUGS (1)
  1. RITUXAN [Suspect]
     Indication: RHEUMATOID ARTHRITIS
     Route: 042

REACTIONS (7)
  - Multi-organ failure [Fatal]
  - Myocardial infarction [Fatal]
  - Cardiogenic shock [Fatal]
  - Acute respiratory distress syndrome [Fatal]
  - Pneumonia klebsiella [Fatal]
  - Septic shock [Fatal]
  - Loss of consciousness [Fatal]
